FAERS Safety Report 10647261 (Version 2)
Quarter: 2014Q4

REPORT INFORMATION
  Report Type: Spontaneous
  Country: US (occurrence: US)
  Receive Date: 20141211
  Receipt Date: 20141211
  Transmission Date: 20150529
  Serious: No
  Sender: FDA-Public Use
  Company Number: US-INCYTE CORPORATION-2014IN002953

PATIENT
  Sex: Male

DRUGS (4)
  1. JAKAFI [Suspect]
     Active Substance: RUXOLITINIB
     Indication: MYELOFIBROSIS
     Dosage: 5 MG, BID
     Route: 048
     Dates: start: 201408, end: 2014
  2. JAKAFI [Suspect]
     Active Substance: RUXOLITINIB
     Dosage: 10 MG IN THE MORNING, 5 MG NIGHTLY
     Route: 048
     Dates: start: 2014
  3. TAMSULOSIN [Concomitant]
     Active Substance: TAMSULOSIN
  4. METFORMIN [Concomitant]
     Active Substance: METFORMIN HYDROCHLORIDE

REACTIONS (7)
  - Hyperhidrosis [Unknown]
  - Blister [Unknown]
  - Headache [Unknown]
  - Pyrexia [Unknown]
  - Splenomegaly [Not Recovered/Not Resolved]
  - Eye disorder [Unknown]
  - Skin discolouration [Unknown]

NARRATIVE: CASE EVENT DATE: 2014
